FAERS Safety Report 25533710 (Version 2)
Quarter: 2025Q3

REPORT INFORMATION
  Report Type: Spontaneous
  Country: EU (occurrence: EU)
  Receive Date: 20250709
  Receipt Date: 20250729
  Transmission Date: 20251020
  Serious: Yes (Hospitalization, Other)
  Sender: REGENERON
  Company Number: EU-BAYER-2025A076000

PATIENT
  Sex: Male

DRUGS (2)
  1. EYLEA HD [Suspect]
     Active Substance: AFLIBERCEPT
     Indication: Neovascular age-related macular degeneration
  2. EYLEA HD [Suspect]
     Active Substance: AFLIBERCEPT
     Dates: start: 20250422

REACTIONS (12)
  - Blindness unilateral [Recovered/Resolved]
  - Neovascular age-related macular degeneration [Unknown]
  - Endophthalmitis [Recovered/Resolved]
  - Eye inflammation [Recovered/Resolved]
  - Foreign body sensation in eyes [Recovered/Resolved]
  - Hypopyon [Recovered/Resolved]
  - Corneal striae [Recovered/Resolved]
  - Vitreous opacities [Recovered/Resolved]
  - Visual acuity reduced [Recovered/Resolved]
  - Anterior chamber cell [Recovered/Resolved]
  - Anterior chamber flare [Recovered/Resolved]
  - Vitreal cells [Recovered/Resolved]

NARRATIVE: CASE EVENT DATE: 20250401
